FAERS Safety Report 21034083 (Version 1)
Quarter: 2022Q3

REPORT INFORMATION
  Report Type: Spontaneous
  Country: US (occurrence: None)
  Receive Date: 20220701
  Receipt Date: 20220701
  Transmission Date: 20221026
  Serious: Yes (unspecified)
  Sender: FDA-Public Use
  Company Number: None

PATIENT
  Sex: Female

DRUGS (1)
  1. OCREVUS [Suspect]
     Active Substance: OCRELIZUMAB

REACTIONS (4)
  - Throat irritation [None]
  - Pruritus [None]
  - Dysphagia [None]
  - Sensory disturbance [None]

NARRATIVE: CASE EVENT DATE: 20220627
